FAERS Safety Report 21069411 (Version 3)
Quarter: 2024Q3

REPORT INFORMATION
  Report Type: Spontaneous
  Country: US (occurrence: US)
  Receive Date: 20220712
  Receipt Date: 20240722
  Transmission Date: 20241017
  Serious: No
  Sender: ASTELLAS
  Company Number: US-ASTELLAS-2022US018912

PATIENT
  Age: 85 Year
  Sex: Female

DRUGS (3)
  1. MYRBETRIQ [Interacting]
     Active Substance: MIRABEGRON
     Indication: Hypertonic bladder
     Route: 065
     Dates: start: 20220317, end: 202205
  2. METOPROLOL [Interacting]
     Active Substance: METOPROLOL
     Indication: Heart rate irregular
     Dosage: UNK UNK, UNKNOWN FREQ.
     Route: 065
     Dates: start: 2021
  3. RESTASIS [Concomitant]
     Active Substance: CYCLOSPORINE
     Indication: Product used for unknown indication
     Dosage: UNK UNK, UNKNOWN FREQ.
     Route: 065

REACTIONS (7)
  - Photophobia [Unknown]
  - Visual impairment [Unknown]
  - Dry eye [Unknown]
  - Vision blurred [Unknown]
  - Condition aggravated [Unknown]
  - Blood pressure systolic increased [Unknown]
  - Drug interaction [Unknown]
